FAERS Safety Report 4690715-2 (Version None)
Quarter: 2005Q2

REPORT INFORMATION
  Report Type: 
  Country: None (occurrence: None)
  Receive Date: 20050614
  Receipt Date: 20050614
  Transmission Date: 20051028
  Serious: Yes (Other)
  Sender: FDA-Public Use
  Company Number: None

PATIENT
  Sex: Male
  Weight: 66.4 kg

DRUGS (2)
  1. CISPLATIN [Suspect]
     Indication: NEOPLASM MALIGNANT
     Dosage: 100 MG/M2 ON DAY 1,22, AND 43
     Dates: start: 20050329
  2. RADIATION [Suspect]
     Dosage: 70 GY/35 FX FOR 7 WEEKS

REACTIONS (5)
  - DRUG TOXICITY [None]
  - DYSPNOEA [None]
  - HAEMATEMESIS [None]
  - NEUTROPHIL COUNT DECREASED [None]
  - TREATMENT NONCOMPLIANCE [None]
